FAERS Safety Report 5102893-1 (Version None)
Quarter: 2006Q3

REPORT INFORMATION
  Report Type: 
  Country: None (occurrence: None)
  Receive Date: 20060908
  Receipt Date: 20060829
  Transmission Date: 20061208
  Serious: Yes (Hospitalization)
  Sender: FDA-Public Use
  Company Number: HQWYE129030AUG06

PATIENT
  Age: 59 Year
  Sex: Female
  Weight: 68.1 kg

DRUGS (13)
  1. PREMARIN [Suspect]
     Indication: HORMONE REPLACEMENT THERAPY
     Dosage: 0.9 MG 1X PER 1 DAY, ORAL
     Route: 048
     Dates: start: 19770101
  2. NEXIUM [Concomitant]
  3. K-DUR 10 [Concomitant]
  4. UNIRETIC (HYDROCHLOROTHIAZIDE/MOEXIPRIL HYDROCHLORIDE) [Concomitant]
  5. AVANDIA [Concomitant]
  6. ZYRTEC [Concomitant]
  7. VERELAN (VERAPAMIL HYDROCHLORIDE) [Concomitant]
  8. LESCOL [Concomitant]
  9. LASIX [Concomitant]
  10. WELLBUTRIN [Concomitant]
  11. COREG [Concomitant]
  12. COMBIVENT [Concomitant]
  13. FLONASE [Concomitant]

REACTIONS (8)
  - BLINDNESS TRANSIENT [None]
  - CATARACT [None]
  - DIABETES MELLITUS NON-INSULIN-DEPENDENT [None]
  - HYPERTENSION [None]
  - MIGRAINE [None]
  - RETINOPATHY [None]
  - TUBERCULOSIS [None]
  - VITREOUS FLOATERS [None]
